FAERS Safety Report 7610972-X (Version None)
Quarter: 2011Q3

REPORT INFORMATION
  Report Type: 
  Country: None (occurrence: None)
  Receive Date: 20110707
  Receipt Date: 20110622
  Transmission Date: 20111222
  Serious: Yes (Life-Threatening, Hospitalization)
  Sender: FDA-Public Use
  Company Number: 2011AP001218

PATIENT
  Age: 70 Year
  Sex: Female

DRUGS (13)
  1. MORPHINE [Concomitant]
  2. ACENOCOUMAROL (ACENOCOUMAROL) [Concomitant]
  3. FUROSEMIDE [Concomitant]
  4. SIMVASTATIN [Concomitant]
  5. FOSINOPRIL SODIUM [Concomitant]
  6. ACETAMINOPHEN [Concomitant]
  7. ENOXAPARIN SODIUM [Concomitant]
  8. CLOPIDOGREL [Concomitant]
  9. ONDANSETRON [Concomitant]
  10. INSULIN ASPART (INSULIN ASPART) [Concomitant]
  11. ASPIRIN [Concomitant]
  12. PANTOPRAZOLE [Concomitant]
  13. SOTALOL HYDROCHLORIDE [Suspect]
     Indication: PRODUCT USED FOR UNKNOWN INDICATION
     Dosage: 80 MG; BID

REACTIONS (4)
  - CARDIAC ARREST [None]
  - VENTRICULAR FIBRILLATION [None]
  - ELECTROCARDIOGRAM QT PROLONGED [None]
  - ATRIAL FIBRILLATION [None]
